FAERS Safety Report 25170747 (Version 1)
Quarter: 2025Q2

REPORT INFORMATION
  Report Type: Report from Study
  Country: US (occurrence: US)
  Receive Date: 20250408
  Receipt Date: 20250408
  Transmission Date: 20250717
  Serious: Yes (Other)
  Sender: ACADIA PHARMACEUTICALS
  Company Number: US-ACADIA PHARMACEUTICALS INC.-ACA-2025-TRF-003797

PATIENT
  Sex: Female

DRUGS (1)
  1. DAYBUE [Suspect]
     Active Substance: TROFINETIDE
     Indication: Rett syndrome
     Dosage: 45 MILLIGRAM, BID, PEG (PERCUTANEOUS ENDOSCOPIC GASTROSTOMY)

REACTIONS (2)
  - Seizure [Not Recovered/Not Resolved]
  - Product dose omission issue [Not Recovered/Not Resolved]
